FAERS Safety Report 4380025-5 (Version None)
Quarter: 2004Q2

REPORT INFORMATION
  Report Type: 
  Country: None (occurrence: None)
  Receive Date: 20040614
  Receipt Date: 20040426
  Transmission Date: 20050107
  Serious: No
  Sender: FDA-Public Use
  Company Number: 2004-BP-03265BP(0)

PATIENT
  Age: 66 Year
  Sex: Male

DRUGS (11)
  1. SPIRIVA [Suspect]
     Indication: CHRONIC OBSTRUCTIVE AIRWAYS DISEASE
     Dosage: 18 MCG (18 MCG, 1 PUFF QD (ONE DOSE)), IH
     Dates: start: 20040426
  2. FE (TEGAFUR) [Concomitant]
  3. GLIPIZIDE [Concomitant]
  4. KCL (POTASSIUM CHLORIDE) [Concomitant]
  5. ASA (ACETYLSALICYCLIC ACID) [Concomitant]
  6. METOPROLOL (METOPROLOL) [Concomitant]
  7. METRONIDAZOLE [Concomitant]
  8. PHOSLO [Concomitant]
  9. NITRO-BID (GLYCERYL TRINITRATE) [Concomitant]
  10. PROTONIX [Concomitant]
  11. LASIX (LASIX [Concomitant]

REACTIONS (1)
  - DYSKINESIA [None]
